FAERS Safety Report 17648545 (Version 16)
Quarter: 2021Q2

REPORT INFORMATION
  Report Type: Spontaneous
  Country: US (occurrence: US)
  Receive Date: 20200409
  Receipt Date: 20210607
  Transmission Date: 20210716
  Serious: Yes (Hospitalization, Other)
  Sender: FDA-Public Use
  Company Number: US-GLAXOSMITHKLINE-US2020AMR051165

PATIENT
  Sex: Female

DRUGS (11)
  1. ZEJULA [Interacting]
     Active Substance: NIRAPARIB
     Dosage: 100 MG, QD
     Route: 048
     Dates: end: 20210412
  2. ZEJULA [Interacting]
     Active Substance: NIRAPARIB
     Dosage: 200 MG, QD
  3. ZEJULA [Interacting]
     Active Substance: NIRAPARIB
     Dosage: 200 MG, QD
     Dates: start: 20200306
  4. REPATHA [Concomitant]
     Active Substance: EVOLOCUMAB
     Indication: PRODUCT USED FOR UNKNOWN INDICATION
     Dosage: UNK
  5. ZEJULA [Interacting]
     Active Substance: NIRAPARIB
     Dosage: 200 MG, QD
     Route: 048
  6. ZEJULA [Interacting]
     Active Substance: NIRAPARIB
     Dosage: 200 MG, QD
  7. ZEJULA [Interacting]
     Active Substance: NIRAPARIB
     Dosage: 200 MG, QD
  8. ZEJULA [Interacting]
     Active Substance: NIRAPARIB
     Dosage: 100 MG, QD
  9. VERAPAMIL [Interacting]
     Active Substance: VERAPAMIL HYDROCHLORIDE
     Indication: TACHYCARDIA
     Dosage: UNK
  10. ZEJULA [Suspect]
     Active Substance: NIRAPARIB
     Indication: OVARIAN CANCER
     Dosage: 200 MG, QD
     Dates: start: 20200306
  11. ZEJULA [Interacting]
     Active Substance: NIRAPARIB
     Dosage: 200 MG, QD
     Route: 048

REACTIONS (29)
  - Splenectomy [Unknown]
  - Pain in extremity [Unknown]
  - Blood pressure increased [Not Recovered/Not Resolved]
  - Eye haemorrhage [Unknown]
  - Abdominal discomfort [Not Recovered/Not Resolved]
  - Surgery [Not Recovered/Not Resolved]
  - Arthralgia [Unknown]
  - Constipation [Not Recovered/Not Resolved]
  - Malaise [Recovering/Resolving]
  - Heart rate increased [Recovering/Resolving]
  - Drug ineffective [Unknown]
  - Retinal vascular occlusion [Unknown]
  - Dizziness [Unknown]
  - Peripheral swelling [Unknown]
  - Abdominal distension [Not Recovered/Not Resolved]
  - Mass [Unknown]
  - Malignant neoplasm progression [Unknown]
  - Headache [Unknown]
  - Disease recurrence [Unknown]
  - Pain [Unknown]
  - Adverse drug reaction [Unknown]
  - Social problem [Unknown]
  - Pancreatectomy [Unknown]
  - Nausea [Unknown]
  - Tachycardia [Unknown]
  - Feeling abnormal [Unknown]
  - Drug interaction [Unknown]
  - Feeling hot [Unknown]
  - Carbohydrate antigen 125 increased [Not Recovered/Not Resolved]
